FAERS Safety Report 16595056 (Version 5)
Quarter: 2020Q1

REPORT INFORMATION
  Report Type: Report from Study
  Country: US (occurrence: US)
  Receive Date: 20190718
  Receipt Date: 20200206
  Transmission Date: 20200409
  Serious: Yes (Other)
  Sender: FDA-Public Use
  Company Number: US-ACTELION-A-NJ2019-193004

PATIENT
  Age: 68 Year
  Sex: Female
  Weight: 79.37 kg

DRUGS (2)
  1. OPSUMIT [Suspect]
     Active Substance: MACITENTAN
     Indication: PULMONARY ARTERIAL HYPERTENSION
     Dosage: 10 MG, QD
     Route: 048
     Dates: start: 20181106
  2. TYVASO [Concomitant]
     Active Substance: TREPROSTINIL

REACTIONS (5)
  - Spinal fracture [Unknown]
  - Malaise [Unknown]
  - Cough [Recovering/Resolving]
  - Spinal operation [Unknown]
  - Urinary tract infection [Unknown]

NARRATIVE: CASE EVENT DATE: 20190621
